FAERS Safety Report 11463866 (Version 1)
Quarter: 2015Q3

REPORT INFORMATION
  Report Type: Spontaneous
  Country: US (occurrence: US)
  Receive Date: 20150831
  Receipt Date: 20150831
  Transmission Date: 20151125
  Serious: No
  Sender: FDA-Public Use
  Company Number: US-ELI_LILLY_AND_COMPANY-US201105002524

PATIENT
  Age: 81 Year
  Sex: Female

DRUGS (6)
  1. CYMBALTA [Suspect]
     Active Substance: DULOXETINE HYDROCHLORIDE
     Indication: PAIN
     Dosage: 30 MG, UNKNOWN
     Dates: start: 20110420, end: 20110426
  2. GABAPENTIN. [Concomitant]
     Active Substance: GABAPENTIN
     Dosage: UNK, UNKNOWN
  3. VITAMIN D                          /00107901/ [Concomitant]
     Active Substance: ERGOCALCIFEROL
     Dosage: UNK, UNKNOWN
  4. VITAMIN B [Concomitant]
     Active Substance: VITAMIN B
     Dosage: UNK, UNKNOWN
  5. EVISTA                             /01303202/ [Concomitant]
     Dosage: UNK, UNKNOWN
  6. TRAMADOL                           /00599202/ [Concomitant]
     Active Substance: TRAMADOL
     Dosage: UNK, UNKNOWN

REACTIONS (5)
  - Decreased appetite [Unknown]
  - Fatigue [Unknown]
  - Off label use [Recovered/Resolved]
  - Ageusia [Unknown]
  - Nausea [Unknown]

NARRATIVE: CASE EVENT DATE: 20110420
